FAERS Safety Report 11525158 (Version 1)
Quarter: 2015Q3

REPORT INFORMATION
  Report Type: Spontaneous
  Country: US (occurrence: US)
  Receive Date: 20150918
  Receipt Date: 20150918
  Transmission Date: 20151125
  Serious: No
  Sender: FDA-Public Use
  Company Number: US-ROCHE-721417

PATIENT
  Sex: Female

DRUGS (2)
  1. RIBAVIRIN. [Suspect]
     Active Substance: RIBAVIRIN
     Indication: HEPATITIS C
     Dosage: DIVIDED DOSES
     Route: 065
  2. PEGASYS [Suspect]
     Active Substance: PEGINTERFERON ALFA-2A
     Indication: HEPATITIS C
     Dosage: FORM: PFS
     Route: 065

REACTIONS (7)
  - Tinnitus [Unknown]
  - Haemorrhoidal haemorrhage [Unknown]
  - Sinus disorder [Unknown]
  - Candida infection [Unknown]
  - Dizziness [Unknown]
  - Tremor [Unknown]
  - Gastrooesophageal reflux disease [Recovering/Resolving]
